FAERS Safety Report 8584501-0 (Version None)
Quarter: 2012Q3

REPORT INFORMATION
  Report Type: 
  Country: None (occurrence: None)
  Receive Date: 20120810
  Receipt Date: 20120806
  Transmission Date: 20120928
  Serious: No
  Sender: FDA-Public Use
  Company Number: US-PFIZER INC-2012174749

PATIENT
  Age: 42 Year
  Sex: Male
  Weight: 74 kg

DRUGS (9)
  1. PEGASYS [Concomitant]
     Dosage: UNK (2 SHOTS IN MORNING AND 3 AT NIGHT), 2X/DAY
  2. HUMIRA [Concomitant]
     Dosage: 40 MG, EVERY 2 WEEKS
     Route: 058
  3. LYRICA [Suspect]
     Dosage: UNKNOWN DOSE TWICE DAILY
     Route: 048
     Dates: end: 20120701
  4. LOVASTATIN [Concomitant]
     Dosage: 100 MG, DAILY
  5. GLIPIZIDE [Concomitant]
     Dosage: UNK, DAILY
  6. IBUPROFEN [Concomitant]
  7. GLIMEPIRIDE [Concomitant]
  8. LYRICA [Suspect]
     Indication: DIABETIC NEUROPATHY
     Dosage: 75 MG, (1)1X/DAY
     Route: 048
     Dates: start: 20110601, end: 20120201
  9. METFORMIN [Concomitant]
     Dosage: 1000 MG, 2X/DAY

REACTIONS (1)
  - PAIN [None]
